FAERS Safety Report 4785206-4 (Version None)
Quarter: 2005Q3

REPORT INFORMATION
  Report Type: 
  Country: None (occurrence: None)
  Receive Date: 20050930
  Receipt Date: 20050914
  Transmission Date: 20060218
  Serious: Yes (Hospitalization)
  Sender: FDA-Public Use
  Company Number: JP-MERCK-0509USA01999

PATIENT
  Age: 72 Year
  Sex: Female

DRUGS (9)
  1. BONALON [Suspect]
     Indication: OSTEOPOROSIS
     Route: 048
     Dates: start: 20050901, end: 20050913
  2. GRAMALIL [Suspect]
     Indication: HALLUCINATION
     Route: 048
     Dates: start: 20050901, end: 20050914
  3. CLINORIL [Suspect]
     Route: 048
     Dates: start: 20050901, end: 20050913
  4. MADOPAR [Concomitant]
     Indication: PARKINSON'S DISEASE
     Route: 048
  5. ALFAROL [Concomitant]
     Indication: OSTEOPOROSIS
     Route: 048
  6. CALCIUM ASPARTATE [Concomitant]
     Indication: OSTEOPOROSIS
     Route: 048
  7. GLAKAY [Concomitant]
     Indication: OSTEOPOROSIS
     Route: 048
  8. MAGNESIUM OXIDE [Concomitant]
     Indication: CONSTIPATION
     Route: 048
  9. CYANOCOBALAMIN [Concomitant]
     Indication: HYPOAESTHESIA
     Route: 048

REACTIONS (2)
  - MUCOSAL EROSION [None]
  - RASH [None]
